FAERS Safety Report 8849630 (Version 1)
Quarter: 2012Q4

REPORT INFORMATION
  Report Type: Spontaneous
  Country: US (occurrence: None)
  Receive Date: 20121018
  Receipt Date: 20121018
  Transmission Date: 20130627
  Serious: Yes (Other)
  Sender: FDA-Public Use
  Company Number: None

PATIENT
  Age: 61 Year
  Sex: Male
  Weight: 133 kg

DRUGS (15)
  1. ALBUTEROL [Concomitant]
  2. AMLODIPINE [Concomitant]
  3. ASPIRIN [Concomitant]
  4. CHOLECALCIFEROL [Concomitant]
  5. CLOPIDOGREL [Concomitant]
  6. FUROSEMIDE [Concomitant]
  7. GUAIFENSEIN [Concomitant]
  8. INSULIN ASPART [Concomitant]
  9. METROPROLOL TARTRATE [Concomitant]
  10. MMF [Concomitant]
  11. PREDNISONE [Concomitant]
  12. RANITIDINE [Concomitant]
  13. SIMVASTATIN [Concomitant]
  14. WARFARIN [Concomitant]
  15. PROGRAF [Suspect]
     Indication: LIVER TRANSPLANT
     Route: 048
     Dates: start: 20120716, end: 20120824

REACTIONS (2)
  - Product substitution issue [None]
  - Immunosuppressant drug level increased [None]
